FAERS Safety Report 9812267 (Version 1)
Quarter: 2014Q1

REPORT INFORMATION
  Report Type: Spontaneous
  Country: US (occurrence: US)
  Receive Date: 20140113
  Receipt Date: 20140113
  Transmission Date: 20141002
  Serious: Yes (Other)
  Sender: FDA-Public Use
  Company Number: US-AMGEN-USASP2014001464

PATIENT
  Age: 72 Year
  Sex: Female

DRUGS (1)
  1. ENBREL [Suspect]
     Indication: RHEUMATOID ARTHRITIS
     Dosage: 50 MG, QWK
     Route: 065
     Dates: start: 20010801, end: 201309

REACTIONS (4)
  - Joint destruction [Recovered/Resolved]
  - Staphylococcal infection [Unknown]
  - Post procedural infection [Unknown]
  - Arthralgia [Not Recovered/Not Resolved]
